FAERS Safety Report 10516746 (Version 4)
Quarter: 2014Q4

REPORT INFORMATION
  Report Type: Spontaneous
  Country: US (occurrence: US)
  Receive Date: 20141014
  Receipt Date: 20141231
  Transmission Date: 20150528
  Serious: No
  Sender: FDA-Public Use
  Company Number: US-PFIZER INC-2014280087

PATIENT
  Age: 52 Year
  Sex: Male

DRUGS (2)
  1. GLUCOSAMINE [Concomitant]
     Active Substance: GLUCOSAMINE
     Dosage: 1500 MG, 2 DAILY
  2. SUTENT [Suspect]
     Active Substance: SUNITINIB MALATE
     Indication: RENAL CELL CARCINOMA
     Dosage: 37.5 MG (25 MG + 12.5 MG), DAILY
     Route: 048
     Dates: start: 20130731

REACTIONS (9)
  - Tooth disorder [Unknown]
  - Muscle spasms [Unknown]
  - Hypoaesthesia [Unknown]
  - Night sweats [Unknown]
  - Diarrhoea [Unknown]
  - Dehydration [Unknown]
  - Asthenia [Unknown]
  - Tooth infection [Unknown]
  - Peripheral coldness [Unknown]

NARRATIVE: CASE EVENT DATE: 20140509
